FAERS Safety Report 8853230 (Version 2)
Quarter: 2012Q4

REPORT INFORMATION
  Report Type: 
  Country: FR (occurrence: FR)
  Receive Date: 20121023
  Receipt Date: 20121106
  Transmission Date: 20130627
  Serious: Yes (Hospitalization)
  Sender: FDA-Public Use
  Company Number: FR-AMGEN-FRASP2012066285

PATIENT
  Age: 70 Year
  Sex: Female
  Weight: 55 kg

DRUGS (3)
  1. ENBREL [Suspect]
     Indication: RHEUMATOID ARTHRITIS
     Dosage: 50 mg, weekly
     Route: 058
     Dates: start: 20090121
  2. NOVATREX                           /00113801/ [Suspect]
     Indication: RHEUMATOID ARTHRITIS
     Dosage: 7.5 mg, weekly
     Dates: start: 20090121
  3. LEVOTHYROX [Concomitant]
     Dosage: UNK

REACTIONS (2)
  - Stress cardiomyopathy [Recovered/Resolved]
  - Cardiac failure acute [Recovered/Resolved]
